FAERS Safety Report 7283024-9 (Version None)
Quarter: 2011Q1

REPORT INFORMATION
  Report Type: 
  Country: None (occurrence: None)
  Receive Date: 20110125
  Receipt Date: 20110110
  Transmission Date: 20110831
  Serious: Yes (Death)
  Sender: FDA-Public Use
  Company Number: 025624

PATIENT
  Age: 78 Year
  Sex: Male

DRUGS (7)
  1. DONEPEZIL HCL [Suspect]
  2. ALPRAZOLAM [Suspect]
  3. ZOLPIDEM [Suspect]
  4. CAFFEINE [Suspect]
  5. CODEINE [Suspect]
  6. VENLAFAXINE [Suspect]
  7. PREDNISONE [Suspect]
     Dosage: ORAL
     Route: 048

REACTIONS (3)
  - COMPLETED SUICIDE [None]
  - RESPIRATORY ARREST [None]
  - CARDIAC ARREST [None]
